FAERS Safety Report 4449616-7 (Version None)
Quarter: 2004Q3

REPORT INFORMATION
  Report Type: 
  Country: None (occurrence: None)
  Receive Date: 20040913
  Receipt Date: 20040901
  Transmission Date: 20050211
  Serious: Yes (Hospitalization)
  Sender: FDA-Public Use
  Company Number: STA-AE-04-MTX-372

PATIENT
  Age: 64 Year
  Sex: Male

DRUGS (13)
  1. RHEUMATREX [Suspect]
     Indication: RHEUMATOID ARTHRITIS
     Dosage: 6 MG 1X PER 1 WK, ORAL
     Route: 048
     Dates: start: 20040727, end: 20040809
  2. AUGMENTIN [Suspect]
  3. CO-DYDRAMOL (DIHYDROCODEINE BITARTRATE/PARACETAMOL) [Suspect]
  4. FLUOXETINE [Suspect]
  5. HUMIRA [Suspect]
     Dosage: 40 G/M^2 1X PER 2 WK, SC
     Route: 058
  6. ROFECOXIB [Suspect]
  7. ENALAPRIL [Concomitant]
  8. ALLOZYM (ALLOPURINOL) [Concomitant]
  9. VOLTAREN [Concomitant]
  10. MUCOSTA (REBAMIPIDE) [Concomitant]
  11. ATELEC (CILNIDIPINE) [Concomitant]
  12. CLAVULIN (AMOXICILLIN TRIHYDRATE/CLAVULANATE POTASSIUM) [Concomitant]
  13. PARAMOL-118 (DIHYDROCODEINE BITARTRATE/PARACETAMOL) [Concomitant]

REACTIONS (6)
  - ABDOMINAL PAIN [None]
  - BONE MARROW DEPRESSION [None]
  - DIARRHOEA [None]
  - HAEMODIALYSIS [None]
  - RETINAL HAEMORRHAGE [None]
  - URINE OUTPUT DECREASED [None]
